FAERS Safety Report 5323086-9 (Version None)
Quarter: 2007Q2

REPORT INFORMATION
  Report Type: 
  Country: None (occurrence: None)
  Receive Date: 20070507
  Receipt Date: 20070112
  Transmission Date: 20071010
  Serious: Yes (Other)
  Sender: FDA-Public Use
  Company Number: MEDI-0005291

PATIENT
  Age: 21 Month
  Sex: Female

DRUGS (5)
  1. SYNAGIS [Suspect]
     Dates: start: 20061101, end: 20061101
  2. SYNAGIS [Suspect]
     Dates: start: 20061201
  3. SYNAGIS [Suspect]
     Dates: start: 20070101
  4. SYNAGIS [Suspect]
     Dates: start: 20070201
  5. SYNAGIS [Suspect]
     Dates: start: 20070301

REACTIONS (2)
  - RESPIRATORY RATE INCREASED [None]
  - TACHYPNOEA [None]
